FAERS Safety Report 5648549-8 (Version None)
Quarter: 2008Q1

REPORT INFORMATION
  Report Type: 
  Country: None (occurrence: None)
  Receive Date: 20080304
  Receipt Date: 20080228
  Transmission Date: 20080703
  Serious: Yes (Death)
  Sender: FDA-Public Use
  Company Number: RU-AVENTIS-200811585GDDC

PATIENT
  Sex: Female
  Weight: 97 kg

DRUGS (6)
  1. LANTUS [Suspect]
     Route: 058
     Dates: start: 20070506, end: 20080217
  2. BISOPROLOL FUMARATE [Concomitant]
     Dates: start: 20060101
  3. LOZAP PLUS [Concomitant]
     Dates: start: 20060101
  4. AMLODIPINE [Concomitant]
     Dates: start: 20060101
  5. INSULIN LISPRO [Concomitant]
     Indication: DIABETES MELLITUS
     Route: 058
     Dates: start: 20070501
  6. METFORMIN HCL [Concomitant]
     Indication: DIABETES MELLITUS
     Dates: start: 20040101

REACTIONS (1)
  - CORONARY ARTERY INSUFFICIENCY [None]
